FAERS Safety Report 6572492-3 (Version None)
Quarter: 2010Q1

REPORT INFORMATION
  Report Type: 
  Country: None (occurrence: None)
  Receive Date: 20100205
  Receipt Date: 20100129
  Transmission Date: 20100710
  Serious: Yes (Other)
  Sender: FDA-Public Use
  Company Number: US-PFIZER INC-2010010686

PATIENT
  Sex: Male
  Weight: 74 kg

DRUGS (1)
  1. CHANTIX [Suspect]
     Indication: SMOKING CESSATION THERAPY
     Dosage: 0.5 MG, 1X/DAY
     Dates: start: 20100120, end: 20100128

REACTIONS (4)
  - ABNORMAL BEHAVIOUR [None]
  - ABNORMAL DREAMS [None]
  - MAJOR DEPRESSION [None]
  - MOOD ALTERED [None]
